FAERS Safety Report 5210261-7 (Version None)
Quarter: 2007Q1

REPORT INFORMATION
  Report Type: 
  Country: None (occurrence: None)
  Receive Date: 20070112
  Receipt Date: 20070112
  Transmission Date: 20070707
  Serious: Yes (Death, Other)
  Sender: FDA-Public Use
  Company Number: None

PATIENT
  Age: 58 Year
  Sex: Male
  Weight: 71 kg

DRUGS (2)
  1. CETUXIMAB 250MG/M2 [Suspect]
     Indication: NON-SMALL CELL LUNG CANCER
     Dosage: 450MG QWEEK
     Dates: start: 20061128, end: 20061204
  2. VINFLUNINE 320MG/M2 [Suspect]
     Dosage: 576MG Q3WEEK
     Dates: start: 20061128

REACTIONS (4)
  - DYSPNOEA [None]
  - HAEMATOCRIT DECREASED [None]
  - PLEURAL HAEMORRHAGE [None]
  - PNEUMOTHORAX [None]
